FAERS Safety Report 12871874 (Version 1)
Quarter: 2016Q4

REPORT INFORMATION
  Report Type: Spontaneous
  Country: US (occurrence: US)
  Receive Date: 20161021
  Receipt Date: 20161021
  Transmission Date: 20170207
  Serious: No
  Sender: FDA-Public Use
  Company Number: US-009507513-1610USA010283

PATIENT

DRUGS (1)
  1. NASONEX [Suspect]
     Active Substance: MOMETASONE FUROATE
     Dosage: 50 MICROGRAM, UNK (STRENGTH RPEORTED AS 50)
     Route: 045

REACTIONS (4)
  - Product quality issue [Unknown]
  - Device malfunction [Unknown]
  - No adverse event [Unknown]
  - Drug dose omission [Unknown]
